FAERS Safety Report 11272748 (Version 1)
Quarter: 2015Q3

REPORT INFORMATION
  Report Type: Spontaneous
  Country: US (occurrence: None)
  Receive Date: 20150714
  Receipt Date: 20150714
  Transmission Date: 20151125
  Serious: No
  Sender: FDA-Public Use
  Company Number: None

PATIENT
  Age: 47 Year
  Sex: Male
  Weight: 136.08 kg

DRUGS (8)
  1. ATENELOL [Concomitant]
     Active Substance: ATENOLOL
  2. L-TYROSINE [Concomitant]
  3. METHYLPHENIDATE ER 54 MG [Suspect]
     Active Substance: METHYLPHENIDATE
  4. COPAXONE [Concomitant]
     Active Substance: GLATIRAMER ACETATE
  5. DULOXETINE. [Concomitant]
     Active Substance: DULOXETINE
  6. VITAMIN D [Concomitant]
     Active Substance: CHOLECALCIFEROL
  7. VITAMIN C [Concomitant]
     Active Substance: ASCORBIC ACID
  8. HCTZ/DIOVAN COMBO [Concomitant]

REACTIONS (4)
  - Product substitution issue [None]
  - Sleep disorder [None]
  - Drug ineffective [None]
  - Product quality issue [None]

NARRATIVE: CASE EVENT DATE: 20150713
